FAERS Safety Report 10411201 (Version 2)
Quarter: 2014Q3

REPORT INFORMATION
  Report Type: Spontaneous
  Country: US (occurrence: US)
  Receive Date: 20140826
  Receipt Date: 20140826
  Transmission Date: 20150326
  Serious: No
  Sender: FDA-Public Use
  Company Number: US-ASTRAZENECA-2013SE62155

PATIENT
  Age: 52 Year
  Sex: Male
  Weight: 60.8 kg

DRUGS (2)
  1. PROVENTIL HFA [Concomitant]
     Active Substance: ALBUTEROL SULFATE
     Indication: CHRONIC OBSTRUCTIVE PULMONARY DISEASE
  2. SYMBICORT [Suspect]
     Active Substance: BUDESONIDE\FORMOTEROL FUMARATE DIHYDRATE
     Indication: CHRONIC OBSTRUCTIVE PULMONARY DISEASE
     Dosage: DOSAGE:80/4.5 MCG 2 PUFFS, FREQUENCY:TWO TIMES A DAY
     Route: 055

REACTIONS (2)
  - Drug ineffective [Unknown]
  - Abdominal distension [Unknown]
